FAERS Safety Report 5248587-3 (Version None)
Quarter: 2007Q1

REPORT INFORMATION
  Report Type: 
  Country: None (occurrence: None)
  Receive Date: 20070227
  Receipt Date: 20070215
  Transmission Date: 20070707
  Serious: Yes (Other)
  Sender: FDA-Public Use
  Company Number: NL-PFIZER INC-2007013885

PATIENT
  Age: 66 Year
  Sex: Female
  Weight: 57 kg

DRUGS (5)
  1. LIPITOR [Suspect]
     Indication: HYPERCHOLESTEROLAEMIA
     Route: 048
  2. LANSOPRAZOL [Concomitant]
     Route: 048
  3. RHINOCORT [Concomitant]
     Route: 045
  4. SPIRIVA [Concomitant]
  5. PULMICORT [Concomitant]

REACTIONS (7)
  - BACK PAIN [None]
  - BRONCHITIS [None]
  - DYSPNOEA [None]
  - GAIT DISTURBANCE [None]
  - MUSCLE STRAIN [None]
  - MUSCULOSKELETAL CHEST PAIN [None]
  - PAIN IN EXTREMITY [None]
